FAERS Safety Report 7924774-8 (Version None)
Quarter: 2011Q4

REPORT INFORMATION
  Report Type: 
  Country: None (occurrence: None)
  Receive Date: 20111118
  Receipt Date: 20111110
  Transmission Date: 20120403
  Serious: Yes (Hospitalization, Other)
  Sender: FDA-Public Use
  Company Number: US-BRISTOL-MYERS SQUIBB COMPANY-14595920

PATIENT
  Age: 61 Year
  Sex: Female
  Weight: 65 kg

DRUGS (3)
  1. TAXOL [Suspect]
     Indication: NON-SMALL CELL LUNG CANCER
     Dosage: START DATE23FEB09;45MG/M2;CONSOLIDATED THERAPY:200 MG/M2.
     Dates: start: 20090302, end: 20090302
  2. ERBITUX [Suspect]
     Indication: NON-SMALL CELL LUNG CANCER
     Dosage: START DATE23FEB09;D1,WK 1 400MG/M2,D 8,15,22,29,36,43.CONTHERAPY:250MG/M2 ON DAY 57,64,71,78,85,92
     Dates: start: 20090223, end: 20090223
  3. CARBOPLATIN [Suspect]
     Indication: NON-SMALL CELL LUNG CANCER
     Dosage: AUC=2 WEEKLY CONCURRENTLY WITH 74GY 5XWK FOR 7.5WK.CONSOLIDATION THERAPY:AUC=6 ON DAY 78 AND 99
     Dates: start: 20090302, end: 20090302

REACTIONS (5)
  - CYSTITIS [None]
  - HYPONATRAEMIA [None]
  - LUNG INFECTION [None]
  - NEURALGIA [None]
  - PERIPHERAL NERVE INFECTION [None]
